FAERS Safety Report 12329035 (Version 2)
Quarter: 2017Q1

REPORT INFORMATION
  Report Type: Spontaneous
  Country: JP (occurrence: JP)
  Receive Date: 20160503
  Receipt Date: 20170120
  Transmission Date: 20170428
  Serious: Yes (Hospitalization)
  Sender: FDA-Public Use
  Company Number: JP-BIOCRYST PHARMACEUTICALS, INC.-2016BCR00182

PATIENT
  Age: 79 Year
  Sex: Male

DRUGS (6)
  1. RAPIACTA [Suspect]
     Active Substance: PERAMIVIR
     Indication: INFLUENZA
     Dosage: 300 MG, ONCE
     Route: 042
     Dates: start: 20160401, end: 20160401
  2. BEPRICOR [Concomitant]
     Active Substance: BEPRIDIL
     Dosage: 50 MG, 1X/DAY
     Route: 048
  3. SISAAL [Concomitant]
     Active Substance: DEXTROMETHORPHAN HYDROBROMIDE
     Indication: INFLUENZA
     Dosage: UNK
     Route: 048
     Dates: start: 20160401, end: 20160401
  4. ROSEOL [Suspect]
     Active Substance: LOXOPROFEN SODIUM
     Indication: INFLUENZA
     Dosage: UNK
     Route: 048
     Dates: start: 20160401, end: 20160401
  5. WARFARIN [Concomitant]
     Active Substance: WARFARIN
     Dosage: 2 UNK, UNK
     Route: 048
  6. WARFARIN [Concomitant]
     Active Substance: WARFARIN
     Dosage: 3 MG, 1X/DAY
     Route: 048

REACTIONS (1)
  - Rhabdomyolysis [Recovered/Resolved]

NARRATIVE: CASE EVENT DATE: 20160402
